FAERS Safety Report 7350953-7 (Version None)
Quarter: 2011Q1

REPORT INFORMATION
  Report Type: 
  Country: None (occurrence: None)
  Receive Date: 20110314
  Receipt Date: 20110128
  Transmission Date: 20110831
  Serious: Yes (Life-Threatening, Hospitalization, Other)
  Sender: FDA-Public Use
  Company Number: US-BAXTER-2010BH021623

PATIENT
  Age: 41 Year
  Sex: Male
  Weight: 85 kg

DRUGS (32)
  1. HEPARIN SODIUM INJECTION [Suspect]
     Route: 065
     Dates: start: 20080901
  2. HEPARIN SODIUM INJECTION [Suspect]
     Route: 042
     Dates: start: 20080831
  3. HEPARIN SODIUM INJECTION [Suspect]
     Route: 040
     Dates: start: 20080831
  4. HEPARIN SODIUM INJECTION [Suspect]
     Route: 042
     Dates: start: 20080903
  5. HEPARIN SODIUM INJECTION [Suspect]
     Route: 042
     Dates: start: 20080906
  6. RESTORIL [Concomitant]
     Indication: PRODUCT USED FOR UNKNOWN INDICATION
     Route: 065
  7. HEPARIN SODIUM INJECTION [Suspect]
     Route: 065
     Dates: start: 20080901
  8. HEPARIN SODIUM INJECTION [Suspect]
     Route: 065
     Dates: start: 20080901
  9. HEPARIN SODIUM INJECTION [Suspect]
     Route: 042
     Dates: start: 20080906, end: 20080907
  10. NIASPAN [Concomitant]
     Indication: PRODUCT USED FOR UNKNOWN INDICATION
     Route: 065
  11. HEPARIN SODIUM INJECTION [Suspect]
     Route: 042
     Dates: start: 20080906, end: 20080907
  12. PLAVIX [Concomitant]
     Indication: PRODUCT USED FOR UNKNOWN INDICATION
     Route: 065
  13. HEPARIN SODIUM INJECTION [Suspect]
     Indication: CATHETER PLACEMENT
     Route: 040
     Dates: start: 20080831
  14. HEPARIN SODIUM INJECTION [Suspect]
     Route: 042
     Dates: start: 20080831
  15. HEPARIN SODIUM INJECTION [Suspect]
     Route: 042
     Dates: start: 20080906
  16. HEPARIN SODIUM INJECTION [Suspect]
     Indication: CONTINUOUS HAEMODIAFILTRATION
     Route: 040
     Dates: start: 20080831
  17. HEPARIN SODIUM INJECTION [Suspect]
     Route: 042
     Dates: start: 20080831
  18. HEPARIN SODIUM INJECTION [Suspect]
     Route: 042
     Dates: start: 20080903
  19. HEPARIN SODIUM INJECTION [Suspect]
     Route: 042
     Dates: start: 20080904
  20. HEPARIN SODIUM INJECTION [Suspect]
     Route: 042
     Dates: start: 20080904
  21. HEPARIN SODIUM INJECTION [Suspect]
     Route: 042
     Dates: start: 20080906
  22. HEPARIN SODIUM INJECTION [Suspect]
     Indication: CENTRAL VENOUS CATHETERISATION
     Route: 040
     Dates: start: 20080831
  23. HEPARIN SODIUM INJECTION [Suspect]
     Route: 065
     Dates: start: 20080901
  24. HEPARIN SODIUM INJECTION [Suspect]
     Route: 040
     Dates: start: 20080831
  25. HEPARIN SODIUM INJECTION [Suspect]
     Route: 040
     Dates: start: 20080831
  26. HEPARIN SODIUM INJECTION [Suspect]
     Route: 042
     Dates: start: 20080904
  27. HEPARIN SODIUM INJECTION [Suspect]
     Route: 065
     Dates: start: 20080901
  28. HEPARIN SODIUM INJECTION [Suspect]
     Route: 065
     Dates: start: 20080901
  29. HEPARIN SODIUM INJECTION [Suspect]
     Route: 042
     Dates: start: 20080903
  30. HEPARIN SODIUM INJECTION [Suspect]
     Route: 042
     Dates: start: 20080906, end: 20080907
  31. CENTRUM [Concomitant]
     Indication: PRODUCT USED FOR UNKNOWN INDICATION
     Route: 065
  32. COREG [Concomitant]
     Indication: PRODUCT USED FOR UNKNOWN INDICATION
     Route: 065

REACTIONS (26)
  - DEVICE RELATED INFECTION [None]
  - CARDIOGENIC SHOCK [None]
  - HYPOXIC-ISCHAEMIC ENCEPHALOPATHY [None]
  - COMPARTMENT SYNDROME [None]
  - BLINDNESS [None]
  - HAEMOGLOBIN DECREASED [None]
  - HAEMODIALYSIS [None]
  - ANOXIA [None]
  - MYOCARDIAL INFARCTION [None]
  - HYPOVOLAEMIC SHOCK [None]
  - CORONARY ARTERY OCCLUSION [None]
  - CANDIDIASIS [None]
  - CATHETER SITE HAEMATOMA [None]
  - RENAL FAILURE ACUTE [None]
  - RETINAL INFARCTION [None]
  - PARALYSIS [None]
  - LIVER DISORDER [None]
  - UNRESPONSIVE TO STIMULI [None]
  - CARDIAC ARREST [None]
  - HAEMORRHAGE [None]
  - HYPOTENSION [None]
  - HAEMATOMA [None]
  - OPTIC ISCHAEMIC NEUROPATHY [None]
  - MONOPARESIS [None]
  - SHOCK [None]
  - ANAEMIA [None]
